FAERS Safety Report 7506073-1 (Version None)
Quarter: 2011Q2

REPORT INFORMATION
  Report Type: 
  Country: None (occurrence: None)
  Receive Date: 20110526
  Receipt Date: 20110518
  Transmission Date: 20111010
  Serious: Yes (Hospitalization)
  Sender: FDA-Public Use
  Company Number: DZ-ROCHE-778712

PATIENT
  Age: 33 Year
  Sex: Male

DRUGS (2)
  1. PEGASYS [Suspect]
     Route: 058
     Dates: start: 20100228, end: 20110201
  2. COPEGUS [Suspect]
     Dosage: FREQUENCY : PER DAY
     Route: 048
     Dates: start: 20100228, end: 20110201

REACTIONS (6)
  - BLINDNESS UNILATERAL [None]
  - DISTURBANCE IN ATTENTION [None]
  - WEIGHT DECREASED [None]
  - IRRITABILITY [None]
  - PITUITARY TUMOUR BENIGN [None]
  - VISUAL ACUITY REDUCED [None]
